FAERS Safety Report 12497296 (Version 1)
Quarter: 2016Q2

REPORT INFORMATION
  Report Type: Spontaneous
  Country: US (occurrence: US)
  Receive Date: 20160624
  Receipt Date: 20160624
  Transmission Date: 20160815
  Serious: Yes (Other)
  Sender: FDA-Public Use
  Company Number: US-UNITED THERAPEUTICS-UNT-2016-009877

PATIENT
  Age: 4 Month
  Sex: Male

DRUGS (3)
  1. DIURIL                             /00011801/ [Concomitant]
     Indication: PRODUCT USED FOR UNKNOWN INDICATION
  2. REMODULIN [Suspect]
     Active Substance: TREPROSTINIL
     Indication: PULMONARY ARTERIAL HYPERTENSION
     Dosage: UNK
     Route: 058
     Dates: start: 2011
  3. ALDACTONE [Concomitant]
     Active Substance: SPIRONOLACTONE
     Indication: PRODUCT USED FOR UNKNOWN INDICATION

REACTIONS (11)
  - Device dislocation [Unknown]
  - Infusion site pain [Unknown]
  - Endotracheal intubation complication [Unknown]
  - Infusion site erythema [Unknown]
  - Infusion site nodule [Unknown]
  - Tracheostomy [Recovering/Resolving]
  - Product odour abnormal [Unknown]
  - Infusion site pruritus [Recovering/Resolving]
  - Infusion site irritation [Unknown]
  - Gastrostomy [Unknown]
  - Drug dose omission [Unknown]

NARRATIVE: CASE EVENT DATE: 2011
